FAERS Safety Report 13881366 (Version 4)
Quarter: 2019Q2

REPORT INFORMATION
  Report Type: Spontaneous
  Country: US (occurrence: US)
  Receive Date: 20170818
  Receipt Date: 20190528
  Transmission Date: 20190711
  Serious: Yes (Hospitalization)
  Sender: FDA-Public Use
  Company Number: US-PFIZER INC-2017355181

PATIENT
  Age: 68 Year
  Sex: Female

DRUGS (2)
  1. XELJANZ [Suspect]
     Active Substance: TOFACITINIB CITRATE
     Indication: ARTHRITIS
     Dosage: 5 MG, UNK
     Dates: start: 201512
  2. XELJANZ [Suspect]
     Active Substance: TOFACITINIB CITRATE
     Dosage: 5 MG, 2X/DAY
     Dates: start: 20190501, end: 20190508

REACTIONS (8)
  - Eye pruritus [Unknown]
  - Dry eye [Unknown]
  - Road traffic accident [Unknown]
  - Skin infection [Unknown]
  - Pain in extremity [Unknown]
  - Product dose omission [Unknown]
  - Eye irritation [Unknown]
  - Contusion [Unknown]
